FAERS Safety Report 4289553-4 (Version None)
Quarter: 2004Q1

REPORT INFORMATION
  Report Type: 
  Country: None (occurrence: None)
  Receive Date: 20040209
  Receipt Date: 20040209
  Transmission Date: 20041129
  Serious: Yes (Other)
  Sender: FDA-Public Use
  Company Number: None

PATIENT
  Age: 69 Year
  Sex: Female
  Weight: 83.9154 kg

DRUGS (1)
  1. ZICAM COLD REMEDY MATRIXX INITIATIVES [Suspect]
     Dosage: 4 SPRAYS EVERY THRE ORAL
     Route: 048

REACTIONS (1)
  - AGEUSIA [None]
